FAERS Safety Report 11678005 (Version 1)
Quarter: 2015Q4

REPORT INFORMATION
  Report Type: Spontaneous
  Country: US (occurrence: US)
  Receive Date: 20151027
  Receipt Date: 20151027
  Transmission Date: 20160304
  Serious: No
  Sender: FDA-Public Use
  Company Number: US-ELI_LILLY_AND_COMPANY-US201010007255

PATIENT
  Age: 60 Year
  Sex: Female

DRUGS (1)
  1. FORTEO [Suspect]
     Active Substance: TERIPARATIDE
     Indication: OSTEOPOROSIS
     Dosage: 20 UG, DAILY (1/D)
     Dates: start: 20100520

REACTIONS (12)
  - Injection site haemorrhage [Unknown]
  - Nervousness [Unknown]
  - Fatigue [Unknown]
  - Cough [Unknown]
  - Injection site erythema [Unknown]
  - Dizziness [Unknown]
  - Nasopharyngitis [Unknown]
  - Dysphagia [Unknown]
  - Tremor [Unknown]
  - Injection site pain [Unknown]
  - Oropharyngeal discomfort [Unknown]
  - Injection site bruising [Unknown]

NARRATIVE: CASE EVENT DATE: 201005
